FAERS Safety Report 10460511 (Version 1)
Quarter: 2014Q3

REPORT INFORMATION
  Report Type: Spontaneous
  Country: DE (occurrence: DE)
  Receive Date: 20140918
  Receipt Date: 20140918
  Transmission Date: 20150326
  Serious: Yes (Other)
  Sender: FDA-Public Use
  Company Number: DE-AUROBINDO-AUR-APL-2014-09603

PATIENT
  Age: 32 Year
  Sex: Female
  Weight: 82 kg

DRUGS (9)
  1. FOLIO [Concomitant]
     Active Substance: FOLIC ACID
     Indication: PROPHYLAXIS OF NEURAL TUBE DEFECT
     Dosage: 0.4 MG, ONCE A DAY
     Route: 048
     Dates: start: 20121206, end: 20130314
  2. THYROXIN [Concomitant]
     Active Substance: LEVOTHYROXINE
     Indication: HYPOTHYROIDISM
     Dosage: 75 ?G, ONCE A DAY
     Route: 048
     Dates: start: 20121206, end: 20130619
  3. NEPRESOL                           /00017902/ [Concomitant]
     Indication: HYPERTENSION
     Dosage: UNK
     Route: 048
  4. HYDROCHLOROTHIAZIDE 25 MG TABLETS [Suspect]
     Active Substance: HYDROCHLOROTHIAZIDE
     Indication: HYPERTENSION
     Dosage: 25 MG, TWO TIMES A DAY
     Route: 048
     Dates: start: 20121206, end: 20130314
  5. METHYLDOPA. [Concomitant]
     Active Substance: METHYLDOPA
     Indication: HYPERTENSION
     Dosage: 25 MG, 3 TIMES A DAY
     Route: 048
     Dates: start: 20130312, end: 20130619
  6. NOVORAPID [Concomitant]
     Active Substance: INSULIN ASPART
     Indication: TYPE 1 DIABETES MELLITUS
     Dosage: INSULIN AS PART
     Route: 048
     Dates: start: 20121206, end: 20130619
  7. METOPROLOL 50MG TABLET [Suspect]
     Active Substance: METOPROLOL
     Indication: HYPERTENSION
     Dosage: 50 MG, 3 TIMES A DAY
     Route: 048
     Dates: start: 20121206, end: 20130601
  8. VALSARTAN 160MG [Suspect]
     Active Substance: VALSARTAN
     Indication: HYPERTENSION
     Dosage: 160 MG, ONCE A DAY
     Route: 048
     Dates: start: 20121206, end: 20130311
  9. DIAZEPAM. [Concomitant]
     Active Substance: DIAZEPAM
     Indication: ACUTE STRESS DISORDER
     Dosage: AFTER THE DEATH OF HER MOTHER, IF REQUIRED
     Route: 048

REACTIONS (3)
  - Nephrotic syndrome [Unknown]
  - Maternal exposure during pregnancy [Unknown]
  - Pre-eclampsia [Unknown]
